FAERS Safety Report 8073327-2 (Version None)
Quarter: 2012Q1

REPORT INFORMATION
  Report Type: 
  Country: None (occurrence: None)
  Receive Date: 20120126
  Receipt Date: 20120112
  Transmission Date: 20120608
  Serious: Yes (Other)
  Sender: FDA-Public Use
  Company Number: US-WATSON-2012-00531

PATIENT
  Sex: Male

DRUGS (3)
  1. DARVON [Suspect]
     Indication: PAIN MANAGEMENT
     Route: 048
  2. DARVOCET [Suspect]
     Indication: PAIN MANAGEMENT
     Route: 048
  3. PROPOXYPHENE HCL AND ACETAMINOPHEN [Suspect]
     Indication: PAIN MANAGEMENT
     Route: 048

REACTIONS (2)
  - MYOCARDIAL INFARCTION [None]
  - SUPRAVENTRICULAR TACHYCARDIA [None]
